FAERS Safety Report 14205034 (Version 1)
Quarter: 2017Q4

REPORT INFORMATION
  Report Type: Spontaneous
  Country: RU (occurrence: RU)
  Receive Date: 20171120
  Receipt Date: 20171120
  Transmission Date: 20180321
  Serious: Yes (Other)
  Sender: FDA-Public Use
  Company Number: RU-JNJFOC-20171115770

PATIENT

DRUGS (1)
  1. IBRUTININB [Suspect]
     Active Substance: IBRUTINIB
     Indication: CHRONIC LYMPHOCYTIC LEUKAEMIA
     Route: 048

REACTIONS (15)
  - Chronic lymphocytic leukaemia [Unknown]
  - Richter^s syndrome [Unknown]
  - Hepatitis B reactivation [Unknown]
  - Cardiac disorder [Unknown]
  - Immune thrombocytopenic purpura [Unknown]
  - Pain [Unknown]
  - Thrombocytopenia [Unknown]
  - Neutropenia [Unknown]
  - Infection [Unknown]
  - Autoimmune haemolytic anaemia [Unknown]
  - Chronic lymphocytic leukaemia refractory [Unknown]
  - Haemorrhage [Unknown]
  - Atrial fibrillation [Unknown]
  - Neoplasm [Unknown]
  - Gastrointestinal disorder [Unknown]
